FAERS Safety Report 10787577 (Version 2)
Quarter: 2015Q1

REPORT INFORMATION
  Report Type: Report from Study
  Country: US (occurrence: US)
  Receive Date: 20150212
  Receipt Date: 20150311
  Transmission Date: 20150721
  Serious: Yes (Other)
  Sender: FDA-Public Use
  Company Number: US-AMGEN-USASL2015011640

PATIENT
  Age: 48 Year
  Sex: Female

DRUGS (1)
  1. ENBREL [Suspect]
     Active Substance: ETANERCEPT
     Indication: RHEUMATOID ARTHRITIS
     Dosage: 50 MG, QWK
     Route: 065
     Dates: start: 20150107, end: 20150225

REACTIONS (8)
  - Injection site warmth [Not Recovered/Not Resolved]
  - Nasopharyngitis [Unknown]
  - Lower respiratory tract infection [Unknown]
  - Injection site pain [Not Recovered/Not Resolved]
  - Fibromyalgia [Not Recovered/Not Resolved]
  - Injection site erythema [Not Recovered/Not Resolved]
  - Chest discomfort [Unknown]
  - Tooth infection [Unknown]

NARRATIVE: CASE EVENT DATE: 2015
